FAERS Safety Report 9898756 (Version 3)
Quarter: 2015Q3

REPORT INFORMATION
  Report Type: Spontaneous
  Country: US (occurrence: US)
  Receive Date: 20140214
  Receipt Date: 20150810
  Transmission Date: 20151125
  Serious: No
  Sender: FDA-Public Use
  Company Number: US-GILEAD-2011-0044359

PATIENT
  Age: 77 Year
  Sex: Female

DRUGS (14)
  1. CHONDROITIN W/GLUCOSAMINE          /02118501/ [Concomitant]
  2. LETAIRIS [Suspect]
     Active Substance: AMBRISENTAN
     Indication: PULMONARY HYPERTENSION
     Dosage: 5 MG, UNK
     Route: 048
     Dates: start: 20110916, end: 20110925
  3. SYNTHROID [Concomitant]
     Active Substance: LEVOTHYROXINE SODIUM
  4. ALBUTEROL                          /00139501/ [Concomitant]
     Active Substance: ALBUTEROL
  5. FISH OIL [Concomitant]
     Active Substance: FISH OIL
  6. LETAIRIS [Suspect]
     Active Substance: AMBRISENTAN
     Indication: AORTIC STENOSIS
  7. LETAIRIS [Suspect]
     Active Substance: AMBRISENTAN
     Indication: AORTIC VALVE REPLACEMENT
  8. VITAMIN D [Concomitant]
     Active Substance: CHOLECALCIFEROL
  9. LEXAPRO [Concomitant]
     Active Substance: ESCITALOPRAM OXALATE
  10. LIPITOR [Concomitant]
     Active Substance: ATORVASTATIN CALCIUM
  11. VESICARE [Concomitant]
     Active Substance: SOLIFENACIN SUCCINATE
  12. ADCIRCA [Concomitant]
     Active Substance: TADALAFIL
  13. COUMADIN [Concomitant]
     Active Substance: WARFARIN SODIUM
     Indication: ATRIAL FIBRILLATION
  14. FAMOTIDINE. [Concomitant]
     Active Substance: FAMOTIDINE

REACTIONS (4)
  - Ocular hyperaemia [Not Recovered/Not Resolved]
  - Eye swelling [Recovered/Resolved]
  - Oedema peripheral [Unknown]
  - Nasal oedema [Not Recovered/Not Resolved]

NARRATIVE: CASE EVENT DATE: 20110923
